FAERS Safety Report 21718578 (Version 4)
Quarter: 2023Q1

REPORT INFORMATION
  Report Type: Report from Study
  Country: US (occurrence: US)
  Receive Date: 20221212
  Receipt Date: 20230316
  Transmission Date: 20230418
  Serious: Yes (Other)
  Sender: FDA-Public Use
  Company Number: US-ABBVIE-4229716

PATIENT
  Sex: Female

DRUGS (1)
  1. HUMIRA [Suspect]
     Active Substance: ADALIMUMAB
     Indication: Hidradenitis
     Dosage: CITRATE FREE?STRENGTH: 40 MG
     Route: 058
     Dates: start: 20220803

REACTIONS (5)
  - Brain neoplasm [Not Recovered/Not Resolved]
  - Illness [Unknown]
  - Sciatica [Not Recovered/Not Resolved]
  - Joint range of motion decreased [Unknown]
  - Endometriosis [Not Recovered/Not Resolved]
